FAERS Safety Report 6250192-7 (Version None)
Quarter: 2009Q2

REPORT INFORMATION
  Report Type: 
  Country: None (occurrence: None)
  Receive Date: 20090626
  Receipt Date: 20090617
  Transmission Date: 20091009
  Serious: Yes (Hospitalization)
  Sender: FDA-Public Use
  Company Number: 230371K09BRA

PATIENT
  Age: 47 Year
  Sex: Female

DRUGS (2)
  1. REBIF [Suspect]
     Dosage: 44 MCG, 3 IN 1 WEEKS
     Dates: start: 20070416, end: 20090604
  2. CARBAMAZEPINE [Concomitant]

REACTIONS (2)
  - MONOPARESIS [None]
  - SENSORY DISTURBANCE [None]
